FAERS Safety Report 7101534-1 (Version None)
Quarter: 2010Q4

REPORT INFORMATION
  Report Type: 
  Country: None (occurrence: None)
  Receive Date: 20101115
  Receipt Date: 20101111
  Transmission Date: 20110411
  Serious: Yes (Death)
  Sender: FDA-Public Use
  Company Number: PHHY2009AR66979

PATIENT
  Sex: Female

DRUGS (4)
  1. CLOZAPINE [Suspect]
     Dosage: UNK
     Dates: start: 19991228
  2. SINEMET [Concomitant]
     Dosage: UNK
  3. MADOPAR [Concomitant]
     Dosage: UNK
  4. LEXOTANIL [Concomitant]

REACTIONS (1)
  - DEATH [None]
